FAERS Safety Report 13943128 (Version 1)
Quarter: 2017Q3

REPORT INFORMATION
  Report Type: Spontaneous
  Country: US (occurrence: US)
  Receive Date: 20170907
  Receipt Date: 20170907
  Transmission Date: 20171128
  Serious: Yes (Other)
  Sender: FDA-Public Use
  Company Number: US-BRISTOL-MYERS SQUIBB COMPANY-BMS-2017-080150

PATIENT
  Age: 84 Year
  Sex: Male

DRUGS (1)
  1. IPILIMUMAB [Suspect]
     Active Substance: IPILIMUMAB
     Indication: PRODUCT USED FOR UNKNOWN INDICATION
     Dosage: 3 MG/KG, Q3WK
     Route: 065
     Dates: start: 201212, end: 201302

REACTIONS (6)
  - Anaemia [Recovered/Resolved]
  - Fatigue [Unknown]
  - Aplasia pure red cell [Recovered/Resolved]
  - Myelodysplastic syndrome [Unknown]
  - Malignant neoplasm progression [Unknown]
  - Diarrhoea [Unknown]

NARRATIVE: CASE EVENT DATE: 201304
